FAERS Safety Report 12865672 (Version 2)
Quarter: 2016Q4

REPORT INFORMATION
  Report Type: Spontaneous
  Country: US (occurrence: US)
  Receive Date: 20161020
  Receipt Date: 20161230
  Transmission Date: 20170207
  Serious: Yes (Death, Hospitalization)
  Sender: FDA-Public Use
  Company Number: US-PFIZER INC-2016484939

PATIENT
  Age: 80 Year
  Sex: Male
  Weight: 108.84 kg

DRUGS (11)
  1. LASIX [Concomitant]
     Active Substance: FUROSEMIDE
     Dosage: 40 MG, DAILY
     Route: 048
  2. LEVOTHYROXINE. [Concomitant]
     Active Substance: LEVOTHYROXINE
     Dosage: 100 MG, DAILY
     Route: 048
  3. PULMICORT TURBUHALER [Concomitant]
     Active Substance: BUDESONIDE
     Indication: CHRONIC OBSTRUCTIVE PULMONARY DISEASE
     Dosage: 1 DF, 2X/DAY, 0.5MG 2ML ONE INHALATION BY MOUTH TWICE DAILY
     Route: 055
  4. FLUTICASONE [Concomitant]
     Active Substance: FLUTICASONE\FLUTICASONE PROPIONATE
     Indication: SINUS DISORDER
     Dosage: 50MG TWO SPRAYS IN EACH NOSTRIL, 2X/DAY
  5. LASIX [Concomitant]
     Active Substance: FUROSEMIDE
     Indication: PERIPHERAL SWELLING
     Dosage: UNK, AS NEEDED
     Dates: start: 20160411
  6. LORAZEPAM. [Concomitant]
     Active Substance: LORAZEPAM
     Indication: ANXIETY
     Dosage: 0.5 MG, AS NEEDED, ONE TABLET BY MOUTH EVERY SIX HOURS AS NEEDED
     Route: 048
  7. VITAMIN D [Concomitant]
     Active Substance: CHOLECALCIFEROL
     Indication: SUPPLEMENTATION THERAPY
     Dosage: 5000 IU, 1X/DAY
     Route: 048
     Dates: start: 2016
  8. PREDNISONE. [Concomitant]
     Active Substance: PREDNISONE
     Indication: CHRONIC OBSTRUCTIVE PULMONARY DISEASE
     Dosage: 10 MG, 1X/DAY
     Route: 048
  9. ALLOPURINOL. [Concomitant]
     Active Substance: ALLOPURINOL
     Indication: GOUT
     Dosage: 100 MG, DAILY
     Route: 048
  10. VFEND [Suspect]
     Active Substance: VORICONAZOLE
     Indication: PULMONARY MYCOSIS
     Dosage: 300 MG, 2X/DAY
     Route: 048
     Dates: start: 201605, end: 201610
  11. RANITIDINE. [Concomitant]
     Active Substance: RANITIDINE
     Indication: GASTROOESOPHAGEAL REFLUX DISEASE
     Dosage: 150 MG, 2X/DAY , ONE TABLET BY MOUTH BEFORE BREAKFAST AND ONE TABLET BY MOUTH BEFORE DINNER
     Route: 048

REACTIONS (6)
  - Vitamin D decreased [Unknown]
  - Device related infection [Unknown]
  - Hyperventilation [Unknown]
  - Pyrexia [Recovered/Resolved]
  - Asthenia [Not Recovered/Not Resolved]
  - Death [Fatal]

NARRATIVE: CASE EVENT DATE: 2016
